FAERS Safety Report 8635507 (Version 2)
Quarter: 2012Q4

REPORT INFORMATION
  Report Type: 
  Country: US (occurrence: US)
  Receive Date: 20120626
  Receipt Date: 20121214
  Transmission Date: 20130627
  Serious: Yes (Death)
  Sender: FDA-Public Use
  Company Number: US-ROCHE-1081062

PATIENT
  Age: 55 Year
  Sex: Male

DRUGS (3)
  1. PEGASYS [Suspect]
     Indication: HEPATITIS C
     Route: 065
  2. COPEGUS [Suspect]
     Indication: HEPATITIS C
     Route: 065
  3. INCIVEK [Suspect]
     Indication: HEPATITIS C
     Route: 065

REACTIONS (1)
  - Acute hepatic failure [Fatal]
